FAERS Safety Report 20954239 (Version 1)
Quarter: 2022Q2

REPORT INFORMATION
  Report Type: Spontaneous
  Country: CA (occurrence: CA)
  Receive Date: 20220614
  Receipt Date: 20220614
  Transmission Date: 20220721
  Serious: Yes (Other)
  Sender: FDA-Public Use
  Company Number: CA-CELLTRION INC.-2021CA009114

PATIENT

DRUGS (11)
  1. INFLECTRA [Suspect]
     Active Substance: INFLIXIMAB-DYYB
     Indication: Crohn^s disease
     Dosage: 600 MG,Q 0 2 6 AND THEN EVERY 8 WEEKS
     Route: 042
     Dates: start: 20210517, end: 20211213
  2. INFLECTRA [Suspect]
     Active Substance: INFLIXIMAB-DYYB
     Dosage: 600 MG WEEK 0, 2, 6 AND THEN EVERY 8 WEEKS
     Route: 042
     Dates: start: 20210601
  3. INFLECTRA [Suspect]
     Active Substance: INFLIXIMAB-DYYB
     Dosage: 600 MG WEEK 0, 2, 6 AND THEN EVERY 8 WEEKS
     Route: 042
     Dates: start: 20210629
  4. INFLECTRA [Suspect]
     Active Substance: INFLIXIMAB-DYYB
     Dosage: 600 MG WEEK 0, 2, 6 AND THEN EVERY 8 WEEKS
     Route: 042
     Dates: start: 20210823
  5. INFLECTRA [Suspect]
     Active Substance: INFLIXIMAB-DYYB
     Dosage: 600 MG WEEK 0, 2, 6 AND THEN EVERY 8 WEEKS
     Route: 042
     Dates: start: 20211018
  6. INFLECTRA [Suspect]
     Active Substance: INFLIXIMAB-DYYB
     Dosage: 600 MG WEEK 0, 2, 6 AND THEN EVERY 8 WEEKS
     Route: 042
     Dates: start: 20211213
  7. INFLECTRA [Suspect]
     Active Substance: INFLIXIMAB-DYYB
     Dosage: 700 MG EVERY 8 WEEK
     Route: 042
  8. INFLECTRA [Suspect]
     Active Substance: INFLIXIMAB-DYYB
     Dosage: 700 MG EVERY 8 WEEK
     Route: 042
     Dates: start: 20220207, end: 20220207
  9. INFLECTRA [Suspect]
     Active Substance: INFLIXIMAB-DYYB
     Dosage: 700 MG, EVERY 6 WEEK
     Route: 042
     Dates: start: 20220321
  10. INFLECTRA [Suspect]
     Active Substance: INFLIXIMAB-DYYB
     Dosage: 700 MG, EVERY 6 WEEK
     Route: 042
     Dates: start: 20220506
  11. BUDESONIDE [Concomitant]
     Active Substance: BUDESONIDE
     Dosage: UNK

REACTIONS (12)
  - Drug level below therapeutic [Unknown]
  - Drug specific antibody present [Unknown]
  - Off label use [Unknown]
  - Off label use [Unknown]
  - Weight increased [Unknown]
  - Condition aggravated [Recovering/Resolving]
  - Headache [Not Recovered/Not Resolved]
  - Arthralgia [Unknown]
  - Weight decreased [Unknown]
  - Impaired quality of life [Unknown]
  - Stress [Not Recovered/Not Resolved]
  - Discomfort [Not Recovered/Not Resolved]

NARRATIVE: CASE EVENT DATE: 20210601
